FAERS Safety Report 23337161 (Version 1)
Quarter: 2023Q4

REPORT INFORMATION
  Report Type: Spontaneous
  Country: IQ (occurrence: IQ)
  Receive Date: 20231226
  Receipt Date: 20231226
  Transmission Date: 20240109
  Serious: Yes (Disabling, Other)
  Sender: FDA-Public Use
  Company Number: IQ-009507513-2312IRQ001131

PATIENT
  Age: 20 Year
  Sex: Male

DRUGS (2)
  1. KEYTRUDA [Suspect]
     Active Substance: PEMBROLIZUMAB
     Indication: Nasopharyngeal cancer metastatic
     Dosage: 200 MILLIGRAM, Q3W
     Route: 042
     Dates: start: 202212, end: 2023
  2. KEYTRUDA [Suspect]
     Active Substance: PEMBROLIZUMAB
     Dosage: 200 MILLIGRAM, Q3W
     Route: 042
     Dates: start: 2023, end: 202306

REACTIONS (4)
  - Tumour pseudoprogression [Unknown]
  - Malignant neoplasm progression [Unknown]
  - Immune-mediated arthritis [Recovered/Resolved]
  - Lymphocytosis [Unknown]

NARRATIVE: CASE EVENT DATE: 20230101
